FAERS Safety Report 7433741-2 (Version None)
Quarter: 2011Q2

REPORT INFORMATION
  Report Type: 
  Country: None (occurrence: None)
  Receive Date: 20110424
  Receipt Date: 20110419
  Transmission Date: 20111010
  Serious: No
  Sender: FDA-Public Use
  Company Number: US-B.I. PHARMACEUTICALS,INC./RIDGEFIELD-2011-BP-05548BP

PATIENT
  Age: 75 Year
  Sex: Female

DRUGS (3)
  1. DIOVAN [Concomitant]
     Indication: BLOOD PRESSURE INCREASED
     Dosage: 80 MG
     Route: 048
     Dates: start: 20100101
  2. PRADAXA [Suspect]
     Indication: ATRIAL FIBRILLATION
     Dosage: 300 MG
     Route: 048
     Dates: start: 20110208
  3. METOPROLOL [Concomitant]
     Dosage: 25 G
     Route: 048
     Dates: start: 20100101

REACTIONS (1)
  - FAECES PALE [None]
